FAERS Safety Report 25349612 (Version 2)
Quarter: 2025Q2

REPORT INFORMATION
  Report Type: Spontaneous
  Country: JP (occurrence: JP)
  Receive Date: 20250522
  Receipt Date: 20250624
  Transmission Date: 20250716
  Serious: Yes (Death, Other)
  Sender: GLAXOSMITHKLINE
  Company Number: JP-GSK-JP2024162390

PATIENT
  Age: 77 Year
  Sex: Male

DRUGS (3)
  1. MOMELOTINIB [Suspect]
     Active Substance: MOMELOTINIB
     Indication: Myelofibrosis
     Dosage: 100 MG, 1D
  2. AMLODIPINE BESYLATE [Concomitant]
     Active Substance: AMLODIPINE BESYLATE
  3. CARDENALIN [Concomitant]
     Active Substance: DOXAZOSIN MESYLATE

REACTIONS (8)
  - Cerebral haemorrhage [Fatal]
  - Subdural haematoma [Fatal]
  - Subarachnoid haemorrhage [Unknown]
  - Altered state of consciousness [Unknown]
  - Dizziness [Recovered/Resolved]
  - Condition aggravated [Unknown]
  - Balance disorder [Unknown]
  - Product dose omission issue [Unknown]

NARRATIVE: CASE EVENT DATE: 20241225
